FAERS Safety Report 4336376-3 (Version None)
Quarter: 2004Q2

REPORT INFORMATION
  Report Type: 
  Country: None (occurrence: None)
  Receive Date: 20040409
  Receipt Date: 20040409
  Transmission Date: 20050107
  Serious: Yes (Other)
  Sender: FDA-Public Use
  Company Number: None

PATIENT
  Age: 60 Year
  Sex: Female
  Weight: 68.0396 kg

DRUGS (8)
  1. AVONEX [Suspect]
     Indication: MULTIPLE SCLEROSIS
     Dosage: 30 MCG WEEKLY
     Dates: start: 20040312
  2. AVONEX [Suspect]
     Indication: MULTIPLE SCLEROSIS
     Dosage: 30 MCG WEEKLY
     Dates: start: 20040324
  3. AVONEX [Suspect]
     Indication: MULTIPLE SCLEROSIS
     Dosage: 30 MCG WEEKLY
     Dates: start: 20040403
  4. NEXIUM [Concomitant]
  5. TIZANIDINE HCL [Concomitant]
  6. AMBIEN [Concomitant]
  7. EVISTA [Concomitant]
  8. FLUOXETINE [Concomitant]

REACTIONS (2)
  - INFLUENZA LIKE ILLNESS [None]
  - PHARMACEUTICAL PRODUCT COMPLAINT [None]
